FAERS Safety Report 18200240 (Version 1)
Quarter: 2020Q3

REPORT INFORMATION
  Report Type: Spontaneous
  Country: FR (occurrence: FR)
  Receive Date: 20200826
  Receipt Date: 20200826
  Transmission Date: 20201103
  Serious: Yes (Other)
  Sender: FDA-Public Use
  Company Number: FR-ANIPHARMA-2020-FR-000219

PATIENT
  Age: 82 Year
  Sex: Female

DRUGS (2)
  1. RESITUNE [Suspect]
     Active Substance: ASPIRIN
     Route: 065
  2. ATACAND [Suspect]
     Active Substance: CANDESARTAN CILEXETIL
     Indication: HYPERTENSION
     Dosage: 4 MG UNK / 8 MG UNK
     Route: 048
     Dates: start: 20200806

REACTIONS (2)
  - Tinnitus [Unknown]
  - Hypertensive crisis [Unknown]

NARRATIVE: CASE EVENT DATE: 202008
